FAERS Safety Report 13711255 (Version 1)
Quarter: 2017Q3

REPORT INFORMATION
  Report Type: Spontaneous
  Country: FR (occurrence: FR)
  Receive Date: 20170703
  Receipt Date: 20170703
  Transmission Date: 20171127
  Serious: Yes (Death)
  Sender: FDA-Public Use
  Company Number: FR-MERCK KGAA-2022858

PATIENT
  Age: 78 Year
  Sex: Female

DRUGS (8)
  1. VALSARTAN. [Suspect]
     Active Substance: VALSARTAN
     Route: 048
  2. FOSFOMYCINE SANDOZ [Suspect]
     Active Substance: FOSFOMYCIN
     Route: 048
     Dates: start: 20170403, end: 20170403
  3. CYMBALTA [Suspect]
     Active Substance: DULOXETINE HYDROCHLORIDE
     Route: 048
  4. NOVOTHYROX [Suspect]
     Active Substance: LEVOTHYROXINE SODIUM
     Indication: PRODUCT USED FOR UNKNOWN INDICATION
     Route: 048
  5. CERIS [Suspect]
     Active Substance: TROSPIUM CHLORIDE
     Route: 048
  6. ORENCIA [Suspect]
     Active Substance: ABATACEPT
     Route: 042
  7. CORTANCYL [Suspect]
     Active Substance: PREDNISONE
     Route: 048
  8. FLUDEX [Suspect]
     Active Substance: INDAPAMIDE
     Route: 048

REACTIONS (1)
  - Death [Fatal]

NARRATIVE: CASE EVENT DATE: 20170404
